FAERS Safety Report 8926574 (Version 1)
Quarter: 2012Q4

REPORT INFORMATION
  Report Type: 
  Country: TH (occurrence: TH)
  Receive Date: 20121127
  Receipt Date: 20121127
  Transmission Date: 20130627
  Serious: Yes (Other)
  Sender: FDA-Public Use
  Company Number: TH-PFIZER INC-2012291410

PATIENT
  Age: 81 Year
  Sex: Female

DRUGS (1)
  1. DETRUSITOL SR [Suspect]
     Indication: URINARY FREQUENCY
     Dosage: UNK
     Route: 048
     Dates: start: 201209, end: 201210

REACTIONS (2)
  - Intraocular pressure increased [Unknown]
  - Visual impairment [Unknown]
